FAERS Safety Report 5195268-0 (Version None)
Quarter: 2006Q4

REPORT INFORMATION
  Report Type: 
  Country: None (occurrence: None)
  Receive Date: 20061229
  Receipt Date: 20061117
  Transmission Date: 20070319
  Serious: Yes (Life-Threatening, Hospitalization)
  Sender: FDA-Public Use
  Company Number: JP-PFIZER INC-2006144709

PATIENT
  Sex: Female
  Weight: 52 kg

DRUGS (10)
  1. SULPERAZON [Suspect]
     Indication: PROPHYLAXIS
     Dosage: DAILY DOSE:2GRAM
     Route: 042
     Dates: start: 20061005, end: 20061023
  2. SULPERAZON [Suspect]
     Indication: PYREXIA
  3. MIRACLID [Concomitant]
     Route: 042
     Dates: start: 20061005, end: 20061018
  4. HYPNOTICS AND SEDATIVES [Concomitant]
  5. URSO [Concomitant]
     Route: 048
     Dates: start: 20061004, end: 20061023
  6. NAUZELIN [Concomitant]
     Route: 048
     Dates: start: 20061004, end: 20061023
  7. TOUGHMAC E [Concomitant]
     Route: 048
     Dates: start: 20061004, end: 20061023
  8. ALLOID [Concomitant]
     Route: 048
     Dates: start: 20061021, end: 20061023
  9. MUCOSTA [Concomitant]
     Route: 048
     Dates: start: 20061021, end: 20061023
  10. SOLU-MEDROL [Concomitant]
     Route: 042
     Dates: start: 20061021, end: 20061023

REACTIONS (14)
  - ACIDOSIS [None]
  - BED REST [None]
  - BLOOD PRESSURE DECREASED [None]
  - CARDIAC FAILURE [None]
  - CARDIOMYOPATHY [None]
  - CONTINUOUS HAEMODIAFILTRATION [None]
  - DEPRESSED LEVEL OF CONSCIOUSNESS [None]
  - HAEMOLYTIC ANAEMIA [None]
  - LYMPHOCYTE STIMULATION TEST POSITIVE [None]
  - RENAL FAILURE [None]
  - RHABDOMYOLYSIS [None]
  - SINUS TACHYCARDIA [None]
  - THROMBOTIC THROMBOCYTOPENIC PURPURA [None]
  - VENTRICULAR TACHYCARDIA [None]
